FAERS Safety Report 4595175-8 (Version None)
Quarter: 2005Q1

REPORT INFORMATION
  Report Type: 
  Country: None (occurrence: None)
  Receive Date: 20050225
  Receipt Date: 20050214
  Transmission Date: 20050727
  Serious: Yes (Death)
  Sender: FDA-Public Use
  Company Number: 2005BL000950

PATIENT
  Age: 28 Year
  Sex: Female

DRUGS (4)
  1. ATROPINE SULFATE [Suspect]
     Indication: SALIVARY HYPERSECRETION
     Dosage: OPHTHALMIC
     Route: 047
     Dates: end: 20050101
  2. CLOZAPINE [Suspect]
     Indication: BIPOLAR DISORDER
     Dosage: 100 MILLIGRAMS; DAILY; ORAL
     Route: 048
     Dates: start: 20040801, end: 20041201
  3. TOPAMAX [Concomitant]
  4. LEXAPRO [Concomitant]

REACTIONS (3)
  - BRAIN OEDEMA [None]
  - INTENTIONAL MISUSE [None]
  - SUICIDE ATTEMPT [None]
